FAERS Safety Report 5816846-9 (Version None)
Quarter: 2008Q3

REPORT INFORMATION
  Report Type: 
  Country: None (occurrence: None)
  Receive Date: 20080721
  Receipt Date: 20080714
  Transmission Date: 20090109
  Serious: Yes (Hospitalization, Other)
  Sender: FDA-Public Use
  Company Number: PHHO2008SG01238

PATIENT
  Sex: Female
  Weight: 58.6 kg

DRUGS (4)
  1. NEORAL [Suspect]
     Indication: RENAL TRANSPLANT
     Dosage: 70 MG, BID
     Route: 048
     Dates: start: 20071213
  2. NEORAL [Suspect]
     Dosage: 60 MG, BID
     Route: 048
     Dates: start: 20080428
  3. ERL 080A ERL+TAB [Suspect]
     Indication: RENAL TRANSPLANT
     Dosage: 360 MG, BID
     Route: 048
     Dates: start: 20060924, end: 20080617
  4. ERL 080A ERL+TAB [Suspect]
     Dosage: UNK
     Dates: start: 20080618, end: 20080624

REACTIONS (11)
  - BLOOD CREATINE INCREASED [None]
  - COMPLICATIONS OF TRANSPLANTED KIDNEY [None]
  - DEHYDRATION [None]
  - DRUG INEFFECTIVE [None]
  - KIDNEY FIBROSIS [None]
  - KIDNEY TRANSPLANT REJECTION [None]
  - NEPHROPATHY TOXIC [None]
  - RENAL ARTERIOSCLEROSIS [None]
  - RENAL ARTERITIS [None]
  - RENAL TUBULAR ATROPHY [None]
  - VARICELLA [None]
